FAERS Safety Report 10578029 (Version 1)
Quarter: 2014Q4

REPORT INFORMATION
  Report Type: Spontaneous
  Country: GB (occurrence: GB)
  Receive Date: 20141112
  Receipt Date: 20141112
  Transmission Date: 20150529
  Serious: Yes (Other)
  Sender: FDA-Public Use
  Company Number: GB-DRREDDYS-GER/UKI/14/0044249

PATIENT
  Age: 9 Year
  Sex: Male
  Weight: 35 kg

DRUGS (4)
  1. SALMETEROL [Concomitant]
     Active Substance: SALMETEROL
     Indication: ASTHMA
     Route: 055
     Dates: start: 20140820, end: 20140909
  2. VENTOLIN [Concomitant]
     Active Substance: ALBUTEROL SULFATE
     Indication: ASTHMA
     Route: 055
     Dates: start: 20131219
  3. MONTELUKAST [Suspect]
     Active Substance: MONTELUKAST SODIUM
     Indication: ASTHMA
     Route: 048
     Dates: start: 20140909, end: 20140918
  4. CLENIL MODULITE [Concomitant]
     Active Substance: BECLOMETHASONE DIPROPIONATE
     Indication: ASTHMA
     Route: 055
     Dates: start: 20140609

REACTIONS (3)
  - Nightmare [Recovered/Resolved]
  - Hallucination [Recovered/Resolved]
  - Dystonia [Recovered/Resolved]
